FAERS Safety Report 26208236 (Version 1)
Quarter: 2025Q4

REPORT INFORMATION
  Report Type: Spontaneous
  Country: US (occurrence: None)
  Receive Date: 20251226
  Receipt Date: 20251226
  Transmission Date: 20260118
  Serious: Yes (Life-Threatening, Hospitalization, Disabling)
  Sender: FDA-CTU
  Company Number: None

PATIENT
  Age: 61 Year
  Sex: Male
  Weight: 94.5 kg

DRUGS (3)
  1. SKYRIZI [Suspect]
     Active Substance: RISANKIZUMAB-RZAA
     Indication: Psoriasis
     Dates: start: 20211201, end: 20250218
  2. Moloxicam [Concomitant]
  3. CARVEDILOL [Concomitant]
     Active Substance: CARVEDILOL

REACTIONS (5)
  - Streptococcal bacteraemia [None]
  - Pneumonia [None]
  - Cardiac ventricular thrombosis [None]
  - Pulmonary embolism [None]
  - Immune system disorder [None]

NARRATIVE: CASE EVENT DATE: 20250317
